FAERS Safety Report 18232120 (Version 1)
Quarter: 2020Q3

REPORT INFORMATION
  Report Type: Spontaneous
  Country: US (occurrence: US)
  Receive Date: 20200903
  Receipt Date: 20200903
  Transmission Date: 20201103
  Serious: Yes (Other)
  Sender: FDA-Public Use
  Company Number: None

PATIENT
  Sex: Female

DRUGS (27)
  1. CARTIA XT [Concomitant]
     Active Substance: DILTIAZEM HYDROCHLORIDE
  2. KLOR?CON [Concomitant]
     Active Substance: POTASSIUM CHLORIDE
  3. POT CHLORIDE ER [Concomitant]
  4. POTCL MICRO [Concomitant]
  5. ADVAIR DISKU [Concomitant]
  6. HUMULIN N [Concomitant]
     Active Substance: INSULIN HUMAN
  7. METOPROLOL. [Concomitant]
     Active Substance: METOPROLOL
  8. MISOPROSTOL. [Concomitant]
     Active Substance: MISOPROSTOL
  9. SOTALOL AF [Concomitant]
  10. VITAMIN D [Concomitant]
     Active Substance: VITAMIN D NOS
  11. WARFARIN [Concomitant]
     Active Substance: WARFARIN
  12. DIGOXIN. [Concomitant]
     Active Substance: DIGOXIN
  13. NEXIUM [Concomitant]
     Active Substance: ESOMEPRAZOLE MAGNESIUM
  14. LISINOPRIL. [Concomitant]
     Active Substance: LISINOPRIL
  15. METOPROL SUC [Concomitant]
  16. MONTELUKAST [Concomitant]
     Active Substance: MONTELUKAST SODIUM
  17. NITROFURANTIN [Concomitant]
     Active Substance: NITROFURANTOIN
  18. SUCRALFATE. [Concomitant]
     Active Substance: SUCRALFATE
  19. TAMIFLU [Concomitant]
     Active Substance: OSELTAMIVIR PHOSPHATE
  20. AMOX/K CLAV [Concomitant]
     Active Substance: AMOXICILLIN\CLAVULANATE POTASSIUM
  21. METOPRL/HCTZ [Concomitant]
  22. CEPHALEXIN. [Concomitant]
     Active Substance: CEPHALEXIN
  23. AMBRISENTAN 5MG TAB [Suspect]
     Active Substance: AMBRISENTAN
     Indication: PULMONARY ARTERIAL HYPERTENSION
     Route: 048
     Dates: start: 20131224
  24. HUMULIN R [Concomitant]
     Active Substance: INSULIN HUMAN
  25. ONDANSETRON [Concomitant]
     Active Substance: ONDANSETRON
  26. FAMOTIDINE. [Concomitant]
     Active Substance: FAMOTIDINE
  27. OMEPRAZOLE. [Concomitant]
     Active Substance: OMEPRAZOLE

REACTIONS (1)
  - Bladder cancer [None]
